FAERS Safety Report 21596824 (Version 2)
Quarter: 2022Q4

REPORT INFORMATION
  Report Type: Spontaneous
  Country: US (occurrence: US)
  Receive Date: 20221115
  Receipt Date: 20221203
  Transmission Date: 20230112
  Serious: No
  Sender: FDA-Public Use
  Company Number: US-002147023-NVSC2022US255755

PATIENT
  Sex: Female

DRUGS (6)
  1. LEQVIO [Suspect]
     Active Substance: INCLISIRAN SODIUM
     Indication: Blood cholesterol abnormal
     Dosage: UNK
     Route: 065
     Dates: start: 20221021
  2. UNSPECIFIED INGREDIENT [Suspect]
     Active Substance: UNSPECIFIED INGREDIENT
     Indication: Product used for unknown indication
     Dosage: UNK
     Route: 065
  3. REPATHA [Suspect]
     Active Substance: EVOLOCUMAB
     Indication: Product used for unknown indication
     Dosage: UNK
     Route: 065
  4. HYDROCHLOROTHIAZIDE [Concomitant]
     Active Substance: HYDROCHLOROTHIAZIDE
     Indication: Blood pressure abnormal
     Dosage: 25 MG
     Route: 065
  5. LOSARTAN [Concomitant]
     Active Substance: LOSARTAN
     Indication: Product used for unknown indication
     Dosage: 50 MG, QD
     Route: 065
  6. LUMIGAN [Concomitant]
     Active Substance: BIMATOPROST
     Indication: Product used for unknown indication
     Dosage: 1 DROP/EYE/DAY
     Route: 047

REACTIONS (16)
  - Peripheral swelling [Not Recovered/Not Resolved]
  - Pain in extremity [Not Recovered/Not Resolved]
  - Skin discolouration [Unknown]
  - Arthralgia [Unknown]
  - Burning sensation [Unknown]
  - Musculoskeletal stiffness [Unknown]
  - Weight abnormal [Unknown]
  - Influenza like illness [Unknown]
  - Pyrexia [Unknown]
  - Myalgia [Unknown]
  - Headache [Unknown]
  - Cough [Unknown]
  - Urine odour abnormal [Unknown]
  - Eye pain [Unknown]
  - Intraocular pressure increased [Unknown]
  - Gait inability [Unknown]
